FAERS Safety Report 9461923 (Version 1)
Quarter: 2013Q3

REPORT INFORMATION
  Report Type: Spontaneous
  Country: AT (occurrence: AT)
  Receive Date: 20130816
  Receipt Date: 20130816
  Transmission Date: 20140515
  Serious: Yes (Other)
  Sender: FDA-Public Use
  Company Number: AT-BAYER-2013-095602

PATIENT
  Sex: 0

DRUGS (2)
  1. NEXAVAR [Suspect]
     Indication: METASTATIC OCULAR MELANOMA
  2. MUPHORAN [Concomitant]
     Indication: METASTATIC OCULAR MELANOMA

REACTIONS (2)
  - Metastatic malignant melanoma [None]
  - Off label use [None]
